FAERS Safety Report 14635842 (Version 1)
Quarter: 2018Q1

REPORT INFORMATION
  Report Type: Spontaneous
  Country: US (occurrence: US)
  Receive Date: 20180314
  Receipt Date: 20180314
  Transmission Date: 20180509
  Serious: No
  Sender: FDA-Public Use
  Company Number: US-ASTRAZENECA-2018SE20201

PATIENT
  Sex: Male

DRUGS (1)
  1. SYMBICORT [Suspect]
     Active Substance: BUDESONIDE\FORMOTEROL FUMARATE DIHYDRATE
     Dosage: 160/4.5, UNKNOWN FREQUENCY UNKNOWN
     Route: 055

REACTIONS (4)
  - Wrong technique in product usage process [Unknown]
  - Abdominal discomfort [Unknown]
  - Chest discomfort [Unknown]
  - Dysgeusia [Unknown]
